FAERS Safety Report 6490083-X (Version None)
Quarter: 2009Q4

REPORT INFORMATION
  Report Type: 
  Country: None (occurrence: None)
  Receive Date: 20091211
  Receipt Date: 20090114
  Transmission Date: 20100525
  Serious: No
  Sender: FDA-Public Use
  Company Number: A0762704A

PATIENT
  Sex: Female

DRUGS (3)
  1. FLONASE [Suspect]
     Route: 045
  2. ADVAIR DISKUS 100/50 [Suspect]
     Indication: MULTIPLE ALLERGIES
     Route: 055
  3. SYNTHROID [Concomitant]

REACTIONS (7)
  - ABDOMINAL PAIN UPPER [None]
  - ANXIETY [None]
  - DRUG INTERACTION [None]
  - HEADACHE [None]
  - INFLUENZA [None]
  - NAUSEA [None]
  - PAIN [None]
